FAERS Safety Report 13672498 (Version 5)
Quarter: 2018Q3

REPORT INFORMATION
  Report Type: Spontaneous
  Country: US (occurrence: US)
  Receive Date: 20170620
  Receipt Date: 20180927
  Transmission Date: 20181010
  Serious: Yes (Other)
  Sender: FDA-Public Use
  Company Number: US-AMGEN-USASP2017090818

PATIENT
  Age: 71 Year
  Sex: Female

DRUGS (3)
  1. IBRANCE [Suspect]
     Active Substance: PALBOCICLIB
     Indication: PRODUCT USED FOR UNKNOWN INDICATION
     Dosage: UNK
     Route: 065
  2. XGEVA [Suspect]
     Active Substance: DENOSUMAB
     Indication: BREAST CANCER METASTATIC
     Dosage: 120 MG, QMO
     Route: 065
     Dates: start: 2005, end: 201611
  3. FASLODEX [Concomitant]
     Active Substance: FULVESTRANT
     Dosage: UNK

REACTIONS (8)
  - Osteonecrosis of jaw [Not Recovered/Not Resolved]
  - Tooth disorder [Unknown]
  - Mouth swelling [Unknown]
  - Mouth ulceration [Unknown]
  - Unevaluable event [Unknown]
  - Toothache [Unknown]
  - Loose tooth [Unknown]
  - Impaired healing [Unknown]
